FAERS Safety Report 6258377-0 (Version None)
Quarter: 2009Q3

REPORT INFORMATION
  Report Type: 
  Country: None (occurrence: None)
  Receive Date: 20090701
  Receipt Date: 20080812
  Transmission Date: 20100115
  Serious: Yes (Other)
  Sender: FDA-Public Use
  Company Number: 580559

PATIENT
  Age: 27 Year
  Sex: Female
  Weight: 63.5 kg

DRUGS (8)
  1. KLONOPIN [Suspect]
     Indication: EPILEPSY
     Dosage: ORAL
     Route: 048
  2. LYRICA [Suspect]
     Indication: EPILEPSY
     Dosage: 25 MG 1 PER DAY ORAL
     Route: 048
     Dates: start: 20080301, end: 20080101
  3. LAMICTAL [Suspect]
     Indication: EPILEPSY
     Dosage: ORAL
     Route: 048
  4. CARAFATE [Concomitant]
  5. PROTONIX [Concomitant]
  6. TUMS (CALCIUM CARBONATE) [Concomitant]
  7. FOLIC ACID [Concomitant]
  8. MULTIVITAMIN [Concomitant]

REACTIONS (5)
  - ACNE [None]
  - CONVULSION [None]
  - INCREASED APPETITE [None]
  - RASH [None]
  - TEMPERATURE INTOLERANCE [None]
